FAERS Safety Report 9565281 (Version 1)
Quarter: 2013Q3

REPORT INFORMATION
  Report Type: Spontaneous
  Country: FR (occurrence: FR)
  Receive Date: 20130930
  Receipt Date: 20130930
  Transmission Date: 20140515
  Serious: Yes (Hospitalization)
  Sender: FDA-Public Use
  Company Number: FR-JNJFOC-20130915390

PATIENT
  Age: 79 Year
  Sex: Male

DRUGS (4)
  1. RISPERDAL [Suspect]
     Indication: ABNORMAL BEHAVIOUR
     Route: 048
     Dates: start: 20130604, end: 20130706
  2. URBANYL [Concomitant]
     Route: 065
  3. AMLOR [Concomitant]
     Route: 065
  4. HUMAN INSULATARD [Concomitant]
     Route: 065

REACTIONS (3)
  - Constipation [Recovered/Resolved]
  - Subileus [Recovered/Resolved]
  - Somnolence [Recovered/Resolved]
